FAERS Safety Report 20185591 (Version 1)
Quarter: 2021Q4

REPORT INFORMATION
  Report Type: Spontaneous
  Country: CN (occurrence: CN)
  Receive Date: 20211215
  Receipt Date: 20211215
  Transmission Date: 20220303
  Serious: Yes (Disabling)
  Sender: FDA-Public Use
  Company Number: CN-OCTA-ALB07621CN

PATIENT
  Age: 77 Year
  Sex: Female

DRUGS (1)
  1. ALBUMIN HUMAN [Suspect]
     Active Substance: ALBUMIN HUMAN
     Indication: Malnutrition
     Route: 042
     Dates: start: 20211101, end: 20211101

REACTIONS (3)
  - Infusion related reaction [Unknown]
  - Altered state of consciousness [Unknown]
  - Critical illness [Unknown]

NARRATIVE: CASE EVENT DATE: 20211101
